FAERS Safety Report 21336310 (Version 1)
Quarter: 2022Q3

REPORT INFORMATION
  Report Type: Spontaneous
  Country: US (occurrence: US)
  Receive Date: 20220915
  Receipt Date: 20220915
  Transmission Date: 20221027
  Serious: Yes (Hospitalization, Other)
  Sender: FDA-Public Use
  Company Number: US-SA-SAC20220914000198

PATIENT
  Sex: Female

DRUGS (14)
  1. DUPIXENT [Suspect]
     Active Substance: DUPILUMAB
     Indication: Illness
     Dosage: 300 MG, QOW
     Route: 058
  2. ADVIL [Concomitant]
     Active Substance: IBUPROFEN
  3. ALEVE [Concomitant]
     Active Substance: NAPROXEN SODIUM
  4. ASPIRIN [Concomitant]
     Active Substance: ASPIRIN
  5. ATROVENT HFA [Concomitant]
     Active Substance: IPRATROPIUM BROMIDE
  6. DAILY-VITE [Concomitant]
  7. B COMPLEX [AMINOBENZOIC ACID;BIOTIN;CHOLINE BITARTRATE;FOLIC ACID;INOS [Concomitant]
     Dosage: UNK (B COMPLEX NUMBER 1 0.4 MG,CO Q-10 10 MG)
  8. TYLENOL [Concomitant]
     Active Substance: ACETAMINOPHEN
  9. VITAMIN D3 [Concomitant]
     Active Substance: CHOLECALCIFEROL
  10. XANAX [Concomitant]
     Active Substance: ALPRAZOLAM
  11. ZINC SULFATE [Concomitant]
     Active Substance: ZINC SULFATE
     Dosage: UNK [50(220)]
  12. CO Q 10 [UBIDECARENONE] [Concomitant]
     Dosage: UNK
  13. VITAMINS NOS [Concomitant]
     Active Substance: VITAMINS
     Dosage: UNK, QD
  14. CALCIUM [Concomitant]
     Active Substance: CALCIUM
     Dosage: UNK (500(125)

REACTIONS (1)
  - Neoplasm malignant [Unknown]
